FAERS Safety Report 5495067-6 (Version None)
Quarter: 2007Q4

REPORT INFORMATION
  Report Type: 
  Country: None (occurrence: None)
  Receive Date: 20071024
  Receipt Date: 20071010
  Transmission Date: 20080405
  Serious: Yes (Hospitalization, Other)
  Sender: FDA-Public Use
  Company Number: US-RANBAXY-2007US-10677

PATIENT

DRUGS (1)
  1. MINOCYCLINE HYDROCHLORIDE [Suspect]
     Indication: ACNE
     Dosage: 100 MG, BID
     Route: 048
     Dates: start: 20070301, end: 20071001

REACTIONS (3)
  - HEADACHE [None]
  - NASAL CONGESTION [None]
  - OCULAR HYPERAEMIA [None]
